FAERS Safety Report 10442450 (Version 1)
Quarter: 2014Q3

REPORT INFORMATION
  Report Type: Spontaneous
  Country: US (occurrence: US)
  Receive Date: 20140909
  Receipt Date: 20140909
  Transmission Date: 20150326
  Serious: Yes (Hospitalization)
  Sender: FDA-Public Use
  Company Number: US-CELGENEUS-163-20785-14090313

PATIENT
  Sex: Male

DRUGS (3)
  1. THALOMID [Suspect]
     Active Substance: THALIDOMIDE
     Indication: APHTHOUS STOMATITIS
     Dosage: 50 MILLIGRAM
     Route: 048
     Dates: start: 200811
  2. THALOMID [Suspect]
     Active Substance: THALIDOMIDE
     Dosage: 100-200-100 MG
     Route: 048
     Dates: start: 200906
  3. THALOMID [Suspect]
     Active Substance: THALIDOMIDE
     Dosage: 50 MILLIGRAM
     Route: 048
     Dates: start: 201002

REACTIONS (2)
  - Abasia [Unknown]
  - Spinal fracture [Unknown]
